FAERS Safety Report 8958172 (Version 1)
Quarter: 2012Q4

REPORT INFORMATION
  Report Type: 
  Country: DE (occurrence: DE)
  Receive Date: 20121211
  Receipt Date: 20121211
  Transmission Date: 20130627
  Serious: Yes (Hospitalization)
  Sender: FDA-Public Use
  Company Number: DE-AMGEN-DEUSP2012067501

PATIENT
  Sex: Male
  Weight: 81 kg

DRUGS (2)
  1. XGEVA [Suspect]
     Indication: HYPERCALCAEMIA
     Dosage: 120 mg, UNK
     Route: 058
     Dates: start: 201207, end: 20120831
  2. XGEVA [Suspect]
     Indication: METASTASES TO BONE

REACTIONS (1)
  - Hypocalcaemia [Recovered/Resolved]
